FAERS Safety Report 12992755 (Version 2)
Quarter: 2017Q3

REPORT INFORMATION
  Report Type: Spontaneous
  Country: FR (occurrence: FR)
  Receive Date: 20161202
  Receipt Date: 20170728
  Transmission Date: 20171127
  Serious: Yes (Death, Life-Threatening, Hospitalization, Other)
  Sender: FDA-Public Use
  Company Number: FR-MACLEODS PHARMACEUTICALS US LTD-MAC2016003618

PATIENT

DRUGS (7)
  1. ESCITALOPRAM 10MG TABLET [Suspect]
     Active Substance: ESCITALOPRAM OXALATE
     Indication: PRODUCT USED FOR UNKNOWN INDICATION
     Dosage: 28 DF, UNK (SEROPLEX 10MG)
     Route: 048
  2. NORDAZEPAM [Suspect]
     Active Substance: NORDAZEPAM
     Indication: PRODUCT USED FOR UNKNOWN INDICATION
     Dosage: UNK
     Route: 065
  3. SEVIKAR [Suspect]
     Active Substance: AMLODIPINE BESYLATE\OLMESARTAN MEDOXOMIL
     Indication: PRODUCT USED FOR UNKNOWN INDICATION
     Dosage: 129 TABLETS (1.29 G OF AMLODIPINE AND 5.16 G OF OLMESARTAN)
     Route: 048
  4. LYSANXIA 10 MG [Suspect]
     Active Substance: PRAZEPAM
     Indication: PRODUCT USED FOR UNKNOWN INDICATION
     Dosage: 42 DF, (420 MG OF PRAZEPAM)
     Route: 048
  5. ATARAX [Suspect]
     Active Substance: HYDROXYZINE HYDROCHLORIDE
     Indication: PRODUCT USED FOR UNKNOWN INDICATION
     Dosage: 28 DF, (700 MG OF HYDROXYZINE)
     Route: 048
  6. CITALOPRAM [Suspect]
     Active Substance: CITALOPRAM HYDROBROMIDE
     Indication: PRODUCT USED FOR UNKNOWN INDICATION
     Dosage: UNK
     Route: 065
  7. ZOLPIDEM [Suspect]
     Active Substance: ZOLPIDEM\ZOLPIDEM TARTRATE
     Indication: PRODUCT USED FOR UNKNOWN INDICATION
     Dosage: UNK
     Route: 065

REACTIONS (16)
  - Toxicity to various agents [Fatal]
  - Acute hepatic failure [Fatal]
  - Loss of consciousness [Fatal]
  - Haemodynamic instability [Fatal]
  - Skin necrosis [Unknown]
  - Multiple organ dysfunction syndrome [Fatal]
  - Shock [Fatal]
  - Metabolic acidosis [Unknown]
  - Coma [Unknown]
  - Hyperlactacidaemia [Unknown]
  - Gastrointestinal ischaemia [Fatal]
  - Acute kidney injury [Fatal]
  - Bezoar [Recovered/Resolved]
  - Overdose [Fatal]
  - Cardiogenic shock [Fatal]
  - Intentional overdose [Fatal]
